FAERS Safety Report 13087826 (Version 1)
Quarter: 2017Q1

REPORT INFORMATION
  Report Type: Spontaneous
  Country: JP (occurrence: JP)
  Receive Date: 20170105
  Receipt Date: 20170105
  Transmission Date: 20170428
  Serious: Yes (Hospitalization)
  Sender: FDA-Public Use
  Company Number: JP-ELI_LILLY_AND_COMPANY-JP201612009967

PATIENT
  Age: 80 Year

DRUGS (3)
  1. TRULICITY [Suspect]
     Active Substance: DULAGLUTIDE
     Indication: DIABETES MELLITUS
     Dosage: UNK
     Route: 058
  2. METGLUCO [Concomitant]
     Active Substance: METFORMIN HYDROCHLORIDE
  3. SUREPOST [Concomitant]
     Active Substance: REPAGLINIDE

REACTIONS (1)
  - Fracture [Recovered/Resolved]
